FAERS Safety Report 21903892 (Version 1)
Quarter: 2023Q1

REPORT INFORMATION
  Report Type: Report from Study
  Country: CA (occurrence: CA)
  Receive Date: 20230124
  Receipt Date: 20230124
  Transmission Date: 20230418
  Serious: Yes (Hospitalization, Other)
  Sender: FDA-Public Use
  Company Number: CA-TAKEDA-2023TUS005669

PATIENT
  Age: 14 Year
  Sex: Male
  Weight: 19 kg

DRUGS (21)
  1. IDURSULFASE [Suspect]
     Active Substance: IDURSULFASE
     Indication: Mucopolysaccharidosis II
     Dosage: 0.5 MILLIGRAM/KILOGRAM, 1/WEEK
     Route: 042
     Dates: start: 20101110
  2. DIPHENHYDRAMINE [Concomitant]
     Active Substance: DIPHENHYDRAMINE
     Indication: Prophylaxis
     Dosage: UNK
     Dates: start: 20101110
  3. IBUPROFEN [Concomitant]
     Active Substance: IBUPROFEN
     Indication: Premedication
     Dosage: UNK
     Route: 048
     Dates: start: 20101110
  4. HEPARIN [Concomitant]
     Active Substance: HEPARIN SODIUM
     Indication: Anticoagulant therapy
     Dosage: UNK
     Route: 042
     Dates: start: 20110119
  5. VENTOLIN [Concomitant]
     Active Substance: ALBUTEROL SULFATE
     Indication: Respiratory disorder
     Dosage: UNK
     Route: 055
     Dates: start: 20121204, end: 2013
  6. NASONEX [Concomitant]
     Active Substance: MOMETASONE FUROATE
     Indication: Respiratory disorder
     Dosage: UNK
     Route: 055
     Dates: start: 20121211, end: 2013
  7. SINGULAIR [Concomitant]
     Active Substance: MONTELUKAST SODIUM
     Indication: Bronchospasm
     Dosage: UNK
     Route: 048
     Dates: start: 20121211, end: 2013
  8. ACETAMINOPHEN [Concomitant]
     Active Substance: ACETAMINOPHEN
     Indication: Upper respiratory tract infection
     Dosage: UNK
     Route: 048
     Dates: start: 20190201, end: 20190202
  9. OSELTAMIVIR [Concomitant]
     Active Substance: OSELTAMIVIR
     Indication: Influenza
     Dosage: UNK
     Route: 048
     Dates: start: 20190212, end: 20190216
  10. CEFTRIAXONE [Concomitant]
     Active Substance: CEFTRIAXONE
     Indication: Upper respiratory tract infection
     Dosage: UNK
     Route: 042
     Dates: start: 20190212, end: 20190212
  11. LACTATED RINGERS SOLUTION [Concomitant]
     Active Substance: CALCIUM CHLORIDE\POTASSIUM CHLORIDE\SODIUM CHLORIDE\SODIUM LACTATE
     Indication: Dental cleaning
     Dosage: UNK
     Route: 042
     Dates: start: 20190723, end: 20190723
  12. KETOROLAC [Concomitant]
     Active Substance: KETOROLAC TROMETHAMINE
     Indication: Dental cleaning
     Dosage: UNK
     Route: 042
     Dates: start: 20190723, end: 20190723
  13. DEXAMETHASONE PHOSPHATE [Concomitant]
     Active Substance: DEXAMETHASONE PHOSPHATE
     Indication: Dental cleaning
     Dosage: UNK
     Route: 042
     Dates: start: 20190723, end: 20190723
  14. ONDANSETRON [Concomitant]
     Active Substance: ONDANSETRON
     Indication: Dental cleaning
     Dosage: UNK
     Route: 042
     Dates: start: 20190723, end: 20190723
  15. REMIFENTANIL [Concomitant]
     Active Substance: REMIFENTANIL
     Indication: Dental cleaning
     Dosage: UNK
     Route: 042
     Dates: start: 20190723, end: 20190723
  16. PROPOFOL [Concomitant]
     Active Substance: PROPOFOL
     Indication: Dental cleaning
     Dosage: UNK
     Route: 042
     Dates: start: 20190723, end: 20190723
  17. FENTANYL [Concomitant]
     Active Substance: FENTANYL
     Indication: Dental cleaning
     Dosage: UNK
     Route: 042
     Dates: start: 20190723, end: 20190723
  18. FUROSEMIDE [Concomitant]
     Active Substance: FUROSEMIDE
     Indication: Pneumonia aspiration
     Dosage: UNK
     Route: 048
     Dates: start: 20190725, end: 20190728
  19. INFLUENZA VIRUS VACCINE [Concomitant]
     Active Substance: INFLUENZA VIRUS VACCINE
     Indication: Immunisation
     Dosage: UNK
     Route: 030
     Dates: start: 20201106, end: 20201106
  20. FLUTICASONE [Concomitant]
     Active Substance: FLUTICASONE
     Indication: Parainfluenzae virus infection
     Dosage: UNK
     Route: 055
     Dates: start: 20211020, end: 20211022
  21. FLUCONAZOLE [Concomitant]
     Active Substance: FLUCONAZOLE
     Indication: Candida infection
     Dosage: UNK
     Route: 042
     Dates: start: 20221225, end: 20230115

REACTIONS (3)
  - Respiratory distress [Unknown]
  - Candida infection [Recovering/Resolving]
  - Influenza [Recovered/Resolved]

NARRATIVE: CASE EVENT DATE: 20221224
